FAERS Safety Report 8528358-2 (Version None)
Quarter: 2012Q3

REPORT INFORMATION
  Report Type: 
  Country: None (occurrence: None)
  Receive Date: 20120722
  Receipt Date: 20120711
  Transmission Date: 20120928
  Serious: Yes (Hospitalization)
  Sender: FDA-Public Use
  Company Number: GB-TEVA-347653ISR

PATIENT
  Age: 76 Year
  Sex: Male
  Weight: 69.85 kg

DRUGS (8)
  1. ALENDRONIC ACID [Concomitant]
  2. KETOPROFEN [Concomitant]
  3. BRICANYL [Concomitant]
  4. TRIMETHOPRIM [Suspect]
     Indication: URINARY TRACT INFECTION
     Route: 048
     Dates: start: 20120624, end: 20120629
  5. PERINDOPRIL ERBUMINE [Concomitant]
  6. INDAPAMIDE [Concomitant]
  7. SIMVASTATIN [Concomitant]
  8. PULMICORT [Concomitant]

REACTIONS (1)
  - PANIC ATTACK [None]
